FAERS Safety Report 9187786 (Version 1)
Quarter: 2013Q1

REPORT INFORMATION
  Report Type: Spontaneous
  Country: US (occurrence: US)
  Receive Date: 20130325
  Receipt Date: 20130325
  Transmission Date: 20140127
  Serious: No
  Sender: FDA-Public Use
  Company Number: US-MYLANLABS-2012S1008294

PATIENT
  Age: 60 Year
  Sex: Female

DRUGS (6)
  1. FENTANYL TRANSDERMAL SYSTEM [Suspect]
     Indication: PAIN
     Dosage: Q 72 HOURS
     Route: 062
     Dates: start: 201204
  2. BENICAR [Concomitant]
     Indication: BLOOD PRESSURE INCREASED
  3. TEGRETOL [Concomitant]
     Indication: COMPLEX REGIONAL PAIN SYNDROME
  4. PROTONIX [Concomitant]
     Indication: GASTROOESOPHAGEAL REFLUX DISEASE
  5. VERAPAMIL [Concomitant]
     Indication: BLOOD PRESSURE INCREASED
  6. XANAX [Concomitant]
     Indication: MUSCLE SPASMS

REACTIONS (2)
  - Pruritus generalised [Not Recovered/Not Resolved]
  - Lethargy [Not Recovered/Not Resolved]
